FAERS Safety Report 9679042 (Version 1)
Quarter: 2013Q4

REPORT INFORMATION
  Report Type: Spontaneous
  Country: US (occurrence: US)
  Receive Date: 20131108
  Receipt Date: 20131108
  Transmission Date: 20140711
  Serious: Yes (Other)
  Sender: FDA-Public Use
  Company Number: US-ASTRAZENECA-2013SE80864

PATIENT
  Age: 71 Year
  Sex: Female
  Weight: 90.7 kg

DRUGS (4)
  1. PULMICORT RESPULES [Suspect]
     Dosage: 1 DISK DAILY
     Route: 055
     Dates: start: 2002
  2. OTHERS (NOT SPECIFIED) [Concomitant]
  3. VICKS [Concomitant]
  4. MENTHOL [Concomitant]

REACTIONS (4)
  - Neoplasm malignant [Unknown]
  - Obstruction [Unknown]
  - Off label use [Unknown]
  - Intentional drug misuse [Unknown]
